FAERS Safety Report 4276695-2 (Version None)
Quarter: 2004Q1

REPORT INFORMATION
  Report Type: 
  Country: None (occurrence: None)
  Receive Date: 20040120
  Receipt Date: 20040105
  Transmission Date: 20041129
  Serious: Yes (Disabling)
  Sender: FDA-Public Use
  Company Number: US-JNJFOC-20031102792

PATIENT
  Age: 34 Year
  Sex: Female
  Weight: 63.9572 kg

DRUGS (3)
  1. TOPAMAX [Suspect]
     Indication: EPILEPSY
     Dosage: 25 MG, ORAL
     Route: 048
     Dates: start: 20020816
  2. DILANTIN (TABLETS) PHENYTOIN SODIUIM [Concomitant]
  3. UNSPECIFIED  (TABLETS) ALL OTHER THERAPEUTIC PRODUCTS [Concomitant]

REACTIONS (4)
  - BLINDNESS [None]
  - RETINAL PIGMENTATION [None]
  - RETINITIS PIGMENTOSA [None]
  - VITREOUS FLOATERS [None]
